FAERS Safety Report 4375365-X (Version None)
Quarter: 2004Q2

REPORT INFORMATION
  Report Type: 
  Country: None (occurrence: None)
  Receive Date: 20040602
  Receipt Date: 20040518
  Transmission Date: 20050107
  Serious: Yes (Other)
  Sender: FDA-Public Use
  Company Number: 601271

PATIENT
  Age: 1 Year
  Sex: Male
  Weight: 11 kg

DRUGS (1)
  1. ADVATE [Suspect]
     Indication: FACTOR VIII DEFICIENCY
     Dosage: 479 IU; TIW; INTRAVENOUS
     Route: 042
     Dates: start: 20040421, end: 20040518

REACTIONS (3)
  - FACTOR VIII INHIBITION [None]
  - HAEMORRHAGE [None]
  - PYREXIA [None]
